FAERS Safety Report 8859536 (Version 1)
Quarter: 2012Q4

REPORT INFORMATION
  Report Type: Spontaneous
  Country: FR (occurrence: None)
  Receive Date: 20121022
  Receipt Date: 20121022
  Transmission Date: 20130627
  Serious: Yes (Other)
  Sender: FDA-Public Use
  Company Number: 2012P1060892

PATIENT
  Age: 30 Year
  Sex: Female

DRUGS (1)
  1. PHENYLEPHRINE [Suspect]
     Dosage: ;X1;

REACTIONS (4)
  - Hypertension [None]
  - Tachycardia [None]
  - Wrong drug administered [None]
  - Circumstance or information capable of leading to medication error [None]
